FAERS Safety Report 23792557 (Version 1)
Quarter: 2024Q2

REPORT INFORMATION
  Report Type: Spontaneous
  Country: IT (occurrence: IT)
  Receive Date: 20240429
  Receipt Date: 20240429
  Transmission Date: 20240717
  Serious: Yes (Hospitalization, Other)
  Sender: FDA-Public Use
  Company Number: None

PATIENT
  Age: 16 Year
  Sex: Female

DRUGS (2)
  1. ZOLOFT [Suspect]
     Active Substance: SERTRALINE HYDROCHLORIDE
     Indication: Product used for unknown indication
     Dosage: 300 MILLIGRAM, THE PATIENT HAS TAKEN 6 CPR OF ZOLOFT OF 50 MG
     Route: 048
     Dates: start: 20240304, end: 20240304
  2. VALPROATE SODIUM [Suspect]
     Active Substance: VALPROATE SODIUM
     Indication: Product used for unknown indication
     Dosage: THE PATIENT HAS TAKEN 10 CPR OF DEPAKIN OF 200 MG
     Route: 048
     Dates: start: 20240304, end: 20240304

REACTIONS (4)
  - Toxicity to various agents [Unknown]
  - Drug abuse [Unknown]
  - Intentional self-injury [Unknown]
  - Headache [Unknown]
